FAERS Safety Report 16717923 (Version 1)
Quarter: 2019Q3

REPORT INFORMATION
  Report Type: Report from Study
  Country: US (occurrence: US)
  Receive Date: 20190819
  Receipt Date: 20190819
  Transmission Date: 20191005
  Serious: Yes (Other)
  Sender: FDA-Public Use
  Company Number: US-EXELIXIS-XL18419023206

PATIENT
  Age: 68 Year
  Sex: Male
  Weight: 109.1 kg

DRUGS (8)
  1. ALLEGRA [Concomitant]
     Active Substance: FEXOFENADINE HYDROCHLORIDE
     Indication: SEASONAL ALLERGY
     Dosage: 180 MG
     Route: 048
     Dates: start: 20180516
  2. NORVASC [Concomitant]
     Active Substance: AMLODIPINE BESYLATE
     Indication: HYPERTENSION
     Dosage: 10 MG, QD
     Route: 048
     Dates: start: 20190628
  3. CB-839 OR PLACEBO [Suspect]
     Active Substance: TELAGLENASTAT
     Indication: CLEAR CELL RENAL CELL CARCINOMA
     Dosage: 800 MG, BID
     Route: 048
     Dates: start: 20190727, end: 20190806
  4. AZELASTINE. [Concomitant]
     Active Substance: AZELASTINE HYDROCHLORIDE
     Indication: SEASONAL ALLERGY
     Dosage: 2 {DF}, BID
     Route: 045
     Dates: start: 20180516
  5. CB-839 OR PLACEBO [Suspect]
     Active Substance: TELAGLENASTAT
     Dosage: 800 MG, BID
     Route: 048
     Dates: start: 20190807
  6. CABOZANTINIB [Suspect]
     Active Substance: CABOZANTINIB
     Indication: CLEAR CELL RENAL CELL CARCINOMA
     Dosage: 60 MG, QD
     Route: 048
     Dates: start: 20190727
  7. HYDRALAZINE [Concomitant]
     Active Substance: HYDRALAZINE HYDROCHLORIDE
     Indication: HYPERTENSION
     Dosage: 50 MG, BID
     Route: 048
     Dates: start: 20190607
  8. HYDROCHLOROTHIAZIDE-LOSARTAN [Concomitant]
     Active Substance: HYDROCHLOROTHIAZIDE\LOSARTAN POTASSIUM
     Indication: HYPERTENSION
     Dosage: 12.5-50 MG
     Route: 048
     Dates: start: 20190628

REACTIONS (1)
  - Accidental overdose [Recovered/Resolved]

NARRATIVE: CASE EVENT DATE: 20190806
